FAERS Safety Report 6552681-4 (Version None)
Quarter: 2010Q1

REPORT INFORMATION
  Report Type: 
  Country: None (occurrence: None)
  Receive Date: 20100126
  Receipt Date: 20100120
  Transmission Date: 20100710
  Serious: Yes (Life-Threatening)
  Sender: FDA-Public Use
  Company Number: B0627458A

PATIENT
  Age: 17 Year

DRUGS (4)
  1. IMIGRAN [Suspect]
     Indication: MIGRAINE
     Route: 048
     Dates: start: 20100108, end: 20100108
  2. SALAMOL [Concomitant]
  3. FOSTAIR [Concomitant]
  4. SINGULAIR [Concomitant]

REACTIONS (3)
  - ASTHMA [None]
  - DYSPNOEA [None]
  - RASH [None]
